FAERS Safety Report 16979996 (Version 1)
Quarter: 2019Q4

REPORT INFORMATION
  Report Type: Spontaneous
  Country: NL (occurrence: NL)
  Receive Date: 20191031
  Receipt Date: 20191031
  Transmission Date: 20200122
  Serious: Yes (Hospitalization, Other)
  Sender: FDA-Public Use
  Company Number: NL-PFIZER INC-2019464786

PATIENT
  Sex: Female
  Weight: 58 kg

DRUGS (1)
  1. EFEXOR XR [Suspect]
     Active Substance: VENLAFAXINE HYDROCHLORIDE
     Indication: DEPRESSION
     Dosage: 112.5 MG, 1X/DAY
     Dates: start: 20190301, end: 20190916

REACTIONS (7)
  - Withdrawal syndrome [Recovering/Resolving]
  - Suicidal ideation [Unknown]
  - Anger [Recovering/Resolving]
  - Heart rate increased [Recovering/Resolving]
  - Fluid retention [Recovering/Resolving]
  - Hypertension [Recovering/Resolving]
  - Aggression [Recovering/Resolving]

NARRATIVE: CASE EVENT DATE: 2019
